FAERS Safety Report 9303138 (Version 1)
Quarter: 2013Q2

REPORT INFORMATION
  Report Type: Spontaneous
  Country: US (occurrence: US)
  Receive Date: 20130522
  Receipt Date: 20130524
  Transmission Date: 20140414
  Serious: Yes (Other)
  Sender: FDA-Public Use
  Company Number: US-JNJFOC-20130506584

PATIENT
  Age: 17 Year
  Sex: Female
  Weight: 51.26 kg

DRUGS (1)
  1. NEOSPORIN MAXIMUM STRENGTH PRAMOXINE OINTMENT [Suspect]
     Indication: EXCORIATION
     Dosage: DIME-SIZE
     Route: 061
     Dates: start: 20130506, end: 20130510

REACTIONS (3)
  - Blister [Not Recovered/Not Resolved]
  - Application site pruritus [Not Recovered/Not Resolved]
  - Erythema [Not Recovered/Not Resolved]
